FAERS Safety Report 8791168 (Version 1)
Quarter: 2012Q4

REPORT INFORMATION
  Report Type: Spontaneous
  Country: US (occurrence: None)
  Receive Date: 20120907
  Receipt Date: 20120907
  Transmission Date: 20130627
  Serious: Yes (Other)
  Sender: FDA-Public Use
  Company Number: DSA_59279_2012

PATIENT

DRUGS (6)
  1. FLUOROURACIL [Suspect]
     Indication: METASTATIC CARCINOMA
     Route: 040
  2. FLUOROURACIL [Suspect]
     Indication: METASTATIC CARCINOMA
     Dosage: (not otherwise specified))
     Route: 042
  3. FLUOROURACIL [Suspect]
  4. CALCIUM FOLINATE [Suspect]
  5. OXALIPLATIN [Suspect]
  6. IRINOTECAN [Suspect]

REACTIONS (1)
  - Anaemia [None]
